FAERS Safety Report 7107116-X (Version None)
Quarter: 2010Q4

REPORT INFORMATION
  Report Type: 
  Country: None (occurrence: None)
  Receive Date: 20101116
  Receipt Date: 20101005
  Transmission Date: 20110411
  Serious: No
  Sender: FDA-Public Use
  Company Number: US-ABBOTT-10P-163-0677095-00

PATIENT
  Sex: Female

DRUGS (5)
  1. SIMCOR [Suspect]
     Indication: BLOOD CHOLESTEROL INCREASED
     Dates: start: 20100801, end: 20100901
  2. SIMCOR [Suspect]
     Dates: start: 20100901, end: 20101004
  3. BACTRIM [Suspect]
     Indication: URINARY TRACT INFECTION
     Dates: start: 20100901, end: 20100901
  4. HYDROCHLOROTHIAZIDE [Concomitant]
     Indication: PRODUCT USED FOR UNKNOWN INDICATION
  5. LISINOPRIL [Concomitant]
     Indication: HYPERTENSION

REACTIONS (4)
  - BACK PAIN [None]
  - GLYCOSYLATED HAEMOGLOBIN INCREASED [None]
  - URINARY TRACT INFECTION [None]
  - URTICARIA [None]
